FAERS Safety Report 13531000 (Version 1)
Quarter: 2017Q2

REPORT INFORMATION
  Report Type: Spontaneous
  Country: US (occurrence: US)
  Receive Date: 20170509
  Receipt Date: 20170509
  Transmission Date: 20170830
  Serious: Yes (Hospitalization)
  Sender: FDA-Public Use
  Company Number: None

PATIENT
  Age: 32 Year
  Sex: Female

DRUGS (1)
  1. LETAIRIS [Suspect]
     Active Substance: AMBRISENTAN
     Indication: SYSTEMIC LUPUS ERYTHEMATOSUS
     Route: 048
     Dates: start: 20170405

REACTIONS (6)
  - Fatigue [None]
  - Respiratory rate increased [None]
  - Chest discomfort [None]
  - Headache [None]
  - Dizziness postural [None]
  - Heart rate increased [None]

NARRATIVE: CASE EVENT DATE: 20170507
